FAERS Safety Report 9056645 (Version 3)
Quarter: 2013Q2

REPORT INFORMATION
  Report Type: Spontaneous
  Country: US (occurrence: US)
  Receive Date: 20130204
  Receipt Date: 20130417
  Transmission Date: 20140414
  Serious: Yes (Other)
  Sender: FDA-Public Use
  Company Number: US-GILEAD-2013-0067305

PATIENT
  Age: 32 Year
  Sex: Female

DRUGS (6)
  1. TRUVADA [Suspect]
     Indication: HIV INFECTION
  2. REYATAZ [Concomitant]
     Indication: HIV INFECTION
  3. NORVIR [Concomitant]
     Indication: HIV INFECTION
  4. EPZICOM [Concomitant]
     Indication: HIV INFECTION
  5. MEPRON                             /00049601/ [Concomitant]
  6. AZITHROMYCIN [Concomitant]

REACTIONS (2)
  - Osteonecrosis [Unknown]
  - Pathological fracture [Unknown]
